FAERS Safety Report 22023343 (Version 5)
Quarter: 2023Q2

REPORT INFORMATION
  Report Type: Spontaneous
  Country: US (occurrence: US)
  Receive Date: 20230223
  Receipt Date: 20230406
  Transmission Date: 20230721
  Serious: No
  Sender: FDA-Public Use
  Company Number: US-ELI_LILLY_AND_COMPANY-US202302007032

PATIENT
  Sex: Female
  Weight: 53.52 kg

DRUGS (5)
  1. ADCIRCA [Suspect]
     Active Substance: TADALAFIL
     Indication: Pulmonary arterial hypertension
     Dosage: UNK UNK, UNKNOWN
     Route: 065
  2. REMODULIN [Suspect]
     Active Substance: TREPROSTINIL
     Indication: Pulmonary arterial hypertension
     Dosage: 40 NG/KG/MIN, UNKNOWN
     Route: 042
     Dates: start: 20180412
  3. REMODULIN [Suspect]
     Active Substance: TREPROSTINIL
     Dosage: 40 NG/KG/MIN, UNKNOWN
     Route: 042
     Dates: start: 20180413
  4. LETAIRIS [Suspect]
     Active Substance: AMBRISENTAN
     Indication: Product used for unknown indication
     Dosage: UNK UNK, UNKNOWN
     Route: 065
  5. UPTRAVI [Suspect]
     Active Substance: SELEXIPAG
     Indication: Pulmonary arterial hypertension
     Dosage: UNK UNK, UNKNOWN
     Route: 065

REACTIONS (12)
  - Abdominal distension [Not Recovered/Not Resolved]
  - Swelling [Unknown]
  - Arthralgia [Unknown]
  - Diarrhoea [Unknown]
  - Headache [Not Recovered/Not Resolved]
  - Flushing [Unknown]
  - Fatigue [Unknown]
  - Dyspnoea [Unknown]
  - Myalgia [Unknown]
  - Swelling face [Not Recovered/Not Resolved]
  - Hot flush [Unknown]
  - Heart rate increased [Unknown]
